FAERS Safety Report 25665982 (Version 1)
Quarter: 2025Q3

REPORT INFORMATION
  Report Type: Spontaneous
  Country: US (occurrence: US)
  Receive Date: 20250811
  Receipt Date: 20250811
  Transmission Date: 20251020
  Serious: Yes (Other)
  Sender: ELI LILLY AND COMPANY
  Company Number: US-ELI_LILLY_AND_COMPANY-US202507030069

PATIENT
  Age: 82 Year
  Sex: Female

DRUGS (5)
  1. HUMALOG [Suspect]
     Active Substance: INSULIN LISPRO
     Indication: Type 2 diabetes mellitus
     Route: 065
  2. HUMALOG [Suspect]
     Active Substance: INSULIN LISPRO
     Indication: Type 2 diabetes mellitus
     Route: 065
  3. HUMALOG [Suspect]
     Active Substance: INSULIN LISPRO
     Route: 065
  4. HUMALOG [Suspect]
     Active Substance: INSULIN LISPRO
     Route: 065
  5. LANTUS [Concomitant]
     Active Substance: INSULIN GLARGINE
     Indication: Product used for unknown indication

REACTIONS (4)
  - Chronic kidney disease [Unknown]
  - Diabetes mellitus inadequate control [Unknown]
  - Tremor [Unknown]
  - Product storage error [Unknown]
